FAERS Safety Report 18379003 (Version 2)
Quarter: 2020Q4

REPORT INFORMATION
  Report Type: Spontaneous
  Country: GB (occurrence: GB)
  Receive Date: 20201013
  Receipt Date: 20201207
  Transmission Date: 20210114
  Serious: Yes (Hospitalization)
  Sender: FDA-Public Use
  Company Number: GB-MYLANLABS-2020M1085943

PATIENT
  Sex: Male

DRUGS (1)
  1. CLOZARIL [Suspect]
     Active Substance: CLOZAPINE
     Indication: SCHIZOPHRENIA
     Dosage: UNK
     Route: 048
     Dates: start: 20140128

REACTIONS (6)
  - General physical health deterioration [Recovered/Resolved]
  - Malaise [Recovered/Resolved]
  - Alcohol abuse [Unknown]
  - Organ failure [Recovered/Resolved]
  - Body temperature increased [Recovered/Resolved]
  - Substance abuse [Unknown]
